FAERS Safety Report 5024662-3 (Version None)
Quarter: 2006Q2

REPORT INFORMATION
  Report Type: 
  Country: None (occurrence: None)
  Receive Date: 20060613
  Receipt Date: 20060602
  Transmission Date: 20061013
  Serious: Yes (Hospitalization)
  Sender: FDA-Public Use
  Company Number: FR-ROCHE-450420

PATIENT
  Age: 81 Year
  Sex: Female
  Weight: 78 kg

DRUGS (6)
  1. RIVOTRIL [Suspect]
     Indication: DRUG USE FOR UNKNOWN INDICATION
     Route: 048
  2. LAROXYL [Interacting]
     Route: 048
     Dates: end: 20060326
  3. LAROXYL [Interacting]
     Route: 048
     Dates: start: 20060405, end: 20060417
  4. MOGADON [Interacting]
     Indication: DRUG USE FOR UNKNOWN INDICATION
     Route: 048
  5. COTAREG [Interacting]
     Indication: ESSENTIAL HYPERTENSION
     Route: 048
     Dates: end: 20060326
  6. LEVOTHYROX [Interacting]
     Route: 048

REACTIONS (5)
  - ANAEMIA [None]
  - BALANCE DISORDER [None]
  - DRUG INTERACTION [None]
  - FALL [None]
  - ORTHOSTATIC HYPOTENSION [None]
